FAERS Safety Report 22779621 (Version 10)
Quarter: 2024Q4

REPORT INFORMATION
  Report Type: Spontaneous
  Country: DE (occurrence: DE)
  Receive Date: 20230802
  Receipt Date: 20241129
  Transmission Date: 20250114
  Serious: Yes (Hospitalization, Other)
  Sender: BOEHRINGER INGELHEIM
  Company Number: DE-BoehringerIngelheim-2023-BI-253086

PATIENT
  Age: 52 Year
  Sex: Female
  Weight: 115.0 kg

DRUGS (23)
  1. SPIRIVA RESPIMAT [Suspect]
     Active Substance: TIOTROPIUM BROMIDE
     Indication: Chronic obstructive pulmonary disease
     Route: 057
     Dates: start: 202306, end: 20230721
  2. OLODATEROL HYDROCHLORIDE\TIOTROPIUM BROMIDE MONOHYDRATE [Suspect]
     Active Substance: OLODATEROL HYDROCHLORIDE\TIOTROPIUM BROMIDE MONOHYDRATE
     Indication: Chronic obstructive pulmonary disease
     Dosage: 2-0-0 PUFFS
     Dates: start: 20180829
  3. BUDESONIDE [Concomitant]
     Active Substance: BUDESONIDE
     Indication: Product used for unknown indication
     Dosage: 2-0-2 PUFFS
     Route: 055
  4. BUDESONIDE [Concomitant]
     Active Substance: BUDESONIDE
     Dosage: 1-0-1 PUFFS?THERAPY START DATE UNKNOWN - REPORTED AS CONCOMITANT MEDICATION SINCE 25-MAR-2020
     Route: 055
  5. BUDESONIDE [Concomitant]
     Active Substance: BUDESONIDE
     Dosage: 2X1 PUFF
     Dates: start: 20210731
  6. BUDESONIDE [Concomitant]
     Active Substance: BUDESONIDE
     Dosage: 1X1 PUFF
     Dates: start: 20201216
  7. NEBIVOLOL [Concomitant]
     Active Substance: NEBIVOLOL
     Indication: Product used for unknown indication
     Dosage: THERAPY START DATE UNKNOWN - REPORTED AS CONCOMITANT MEDICATION ON 21-JUL-2023?0.5-0-0.5
  8. NEBIVOLOL [Concomitant]
     Active Substance: NEBIVOLOL
     Dosage: THERAPY START DATE UNKNOWN - REPORTED AS CONCOMITANT MEDICATION ON 22-JUL-2023?0.5-0-0.5
  9. Opipramol 50 mg [Concomitant]
     Indication: Product used for unknown indication
     Dosage: THERAPY START DATE UNKNOWN - REPORTED AS CONCOMITANT MEDICATION ON 21-JUL-2023?0-0-1
  10. Opipramol 50 mg [Concomitant]
     Dosage: THERAPY START DATE UNKNOWN - REPORTED AS CONCOMITANT MEDICATION ON 22-JUL-2023?0.5-0-1
  11. Cetirizin 10 mg [Concomitant]
     Indication: Product used for unknown indication
     Dosage: THERAPY START DATE UNKNOWN - REPORTED AS CONCOMITANT MEDICATION ON 21-JUL-2023?0-0-1
  12. Novopulmon DA [Concomitant]
     Indication: Product used for unknown indication
     Dosage: THERAPY START DATE UNKNOWN - REPORTED AS CONCOMITANT MEDICATION ON 21-JUL-2023 ?2 PUFFS DAILY
  13. PREDNISOLONE [Concomitant]
     Active Substance: PREDNISOLONE
     Indication: Product used for unknown indication
     Dosage: THERAPY START DATE UNKNOWN - REPORTED AS CONCOMITANT MEDICATION ON 10-AUG-2023?TIMELY LIMITED IMPACT
  14. PREDNISOLONE [Concomitant]
     Active Substance: PREDNISOLONE
     Dosage: THERAPY START DATE UNKNOWN - REPORTED AS CONCOMITANT MEDICATION SINCE 05-JAN-2022?TIME-LIMITED ACCOR
  15. PREDNISOLONE [Concomitant]
     Active Substance: PREDNISOLONE
     Dosage: THERAPY START DATE UNKNOWN - REPORTED AS CONCOMITANT MEDICATION SINCE 12-DEC-2022?PREDNISOLONE IMPAC
  16. Trixeo 5/7.2/160 Aeros [Concomitant]
     Indication: Product used for unknown indication
     Dosage: THERAPY START DATE UNKNOWN - REPORTED AS CONCOMITANT MEDICATION ON 09-JAN-2024?2-0-2
  17. FENOTEROL HYDROBROMIDE\IPRATROPIUM BROMIDE [Concomitant]
     Active Substance: FENOTEROL HYDROBROMIDE\IPRATROPIUM BROMIDE
     Indication: Product used for unknown indication
     Dosage: BERODUAL?-3 DROPS/0.9% NACL SOLUTION 1-1-1 VIA COMPRESSOR NEBULIZER THERAPY START DATE UNKNOWN - REP
     Route: 055
  18. FENOTEROL HYDROBROMIDE\IPRATROPIUM BROMIDE [Concomitant]
     Active Substance: FENOTEROL HYDROBROMIDE\IPRATROPIUM BROMIDE
     Dosage: THERAPY START DATE UNKNOWN - REPORTED AS MEDICATION ON 10-AUG-2023?3 DROPLETS 1-1-1
  19. FENOTEROL HYDROBROMIDE\IPRATROPIUM BROMIDE [Concomitant]
     Active Substance: FENOTEROL HYDROBROMIDE\IPRATROPIUM BROMIDE
     Dosage: AS NECESSARY?THERAPY START DATE UNKNOWN - REPORTED AS CONCOMITANT MEDICATION SINCE 25-MAR-2020
  20. ALBUTEROL [Concomitant]
     Active Substance: ALBUTEROL
     Indication: Product used for unknown indication
     Dosage: PER PRESSURE NEBULIZER?WITH 0.9 % NACL/SALBUTAMOL SOLUTION
     Dates: start: 20220105
  21. PREDNISOLONE [Concomitant]
     Active Substance: PREDNISOLONE
  22. PREDNISOLONE [Concomitant]
     Active Substance: PREDNISOLONE
  23. SIMVASTATIN [Concomitant]
     Active Substance: SIMVASTATIN
     Indication: Product used for unknown indication
     Dosage: THERAPY START DATE UNKNOWN - REPORTED AS CONCOMITANT MEDICATION SINCE 21-JUL-2023?0-0-1

REACTIONS (24)
  - Chronic obstructive pulmonary disease [Unknown]
  - Circulatory collapse [Unknown]
  - General physical health deterioration [Not Recovered/Not Resolved]
  - Pulmonary function test decreased [Unknown]
  - Suicidal ideation [Unknown]
  - Chest discomfort [Unknown]
  - Haemorrhage [Recovered/Resolved]
  - Hypoaesthesia [Unknown]
  - Infection [Recovering/Resolving]
  - Asthenia [Unknown]
  - Product quality issue [Unknown]
  - Depression [Unknown]
  - Dyspnoea [Unknown]
  - Panic attack [Unknown]
  - Fatigue [Unknown]
  - Listless [Unknown]
  - Syncope [Unknown]
  - Anxiety [Unknown]
  - Insomnia [Unknown]
  - Dysphonia [Unknown]
  - Headache [Not Recovered/Not Resolved]
  - Arthralgia [Not Recovered/Not Resolved]
  - Post-traumatic stress disorder [Unknown]
  - Medication error [Unknown]

NARRATIVE: CASE EVENT DATE: 20180815
